FAERS Safety Report 17092724 (Version 1)
Quarter: 2019Q4

REPORT INFORMATION
  Report Type: Spontaneous
  Country: US (occurrence: US)
  Receive Date: 20191101
  Receipt Date: 20191101
  Transmission Date: 20200122
  Serious: Yes (Death)
  Sender: FDA-Public Use
  Company Number: None

PATIENT
  Age: 50 Year
  Sex: Female

DRUGS (3)
  1. TYKERB [Concomitant]
     Active Substance: LAPATINIB DITOSYLATE
  2. CAPECITABINE 500MG TAB [Suspect]
     Active Substance: CAPECITABINE
     Route: 048
     Dates: start: 20191007
  3. CAPECITABINE TAB 150MG [Suspect]
     Active Substance: CAPECITABINE
     Route: 048
     Dates: start: 20191007

REACTIONS (1)
  - Death [None]

NARRATIVE: CASE EVENT DATE: 20191031
